FAERS Safety Report 5218325-9 (Version None)
Quarter: 2007Q1

REPORT INFORMATION
  Report Type: 
  Country: None (occurrence: None)
  Receive Date: 20070123
  Receipt Date: 20070123
  Transmission Date: 20070707
  Serious: Yes (Death)
  Sender: FDA-Public Use
  Company Number: None

PATIENT
  Age: 66 Year
  Sex: Male
  Weight: 58.0604 kg

DRUGS (2)
  1. OXALIPLATIN [Suspect]
     Indication: NEOPLASM MALIGNANT
     Dosage: 130 MG/M2 IV
     Route: 042
     Dates: start: 20061206
  2. DOCETAXEL [Suspect]
     Indication: NEOPLASM MALIGNANT
     Dosage: 60 MG/M2 IV
     Route: 042
     Dates: start: 20061206

REACTIONS (5)
  - ASTHENIA [None]
  - FALL [None]
  - MULTI-ORGAN FAILURE [None]
  - NAUSEA [None]
  - VOMITING [None]
